FAERS Safety Report 16438129 (Version 1)
Quarter: 2019Q2

REPORT INFORMATION
  Report Type: Report from Study
  Country: None (occurrence: AR)
  Receive Date: 20190617
  Receipt Date: 20190617
  Transmission Date: 20190711
  Serious: Yes (Other)
  Sender: FDA-Public Use
  Company Number: AR-ABBVIE-19K-007-2821809-00

PATIENT
  Age: 60 Year
  Sex: Female

DRUGS (4)
  1. HUMIRA [Suspect]
     Active Substance: ADALIMUMAB
     Indication: PSORIATIC ARTHROPATHY
     Route: 058
     Dates: start: 20170920, end: 2018
  2. HUMIRA [Suspect]
     Active Substance: ADALIMUMAB
     Route: 058
  3. PREGABALIN. [Suspect]
     Active Substance: PREGABALIN
     Indication: ARTHRALGIA
     Route: 065
  4. PREGABALIN. [Suspect]
     Active Substance: PREGABALIN
     Indication: PAIN IN EXTREMITY
     Route: 065

REACTIONS (10)
  - Pain in extremity [Recovered/Resolved]
  - Exostosis [Unknown]
  - Weight increased [Unknown]
  - Arthralgia [Recovered/Resolved]
  - Fall [Unknown]
  - Joint dislocation [Recovering/Resolving]
  - Post procedural complication [Unknown]
  - Osteoporosis [Unknown]
  - Fall [Unknown]
  - Muscular weakness [Unknown]

NARRATIVE: CASE EVENT DATE: 201810
